FAERS Safety Report 5751424-1 (Version None)
Quarter: 2008Q2

REPORT INFORMATION
  Report Type: 
  Country: None (occurrence: None)
  Receive Date: 20080527
  Receipt Date: 20080507
  Transmission Date: 20081010
  Serious: Yes (Hospitalization)
  Sender: FDA-Public Use
  Company Number: 2008AL003820

PATIENT
  Sex: Male
  Weight: 70.3075 kg

DRUGS (1)
  1. DIGOXIN [Suspect]
     Dosage: 0.25MG
     Dates: start: 20071001, end: 20080101

REACTIONS (2)
  - FALL [None]
  - MYOCARDIAL INFARCTION [None]
